FAERS Safety Report 14685441 (Version 2)
Quarter: 2018Q2

REPORT INFORMATION
  Report Type: Spontaneous
  Country: US (occurrence: US)
  Receive Date: 20180327
  Receipt Date: 20180423
  Transmission Date: 20180711
  Serious: No
  Sender: FDA-Public Use
  Company Number: US-ASTRAZENECA-2018SE36635

PATIENT
  Sex: Female

DRUGS (2)
  1. BYETTA [Suspect]
     Active Substance: EXENATIDE
     Dosage: TWICE DAILY
     Route: 065
  2. BYDUREON [Suspect]
     Active Substance: EXENATIDE
     Route: 065
     Dates: start: 20180321

REACTIONS (6)
  - Blood glucose fluctuation [Unknown]
  - Dry mouth [Unknown]
  - Blood glucose increased [Unknown]
  - Underdose [Unknown]
  - Vision blurred [Unknown]
  - Dizziness [Unknown]
